FAERS Safety Report 24189561 (Version 3)
Quarter: 2024Q3

REPORT INFORMATION
  Report Type: Spontaneous
  Country: CA (occurrence: CA)
  Receive Date: 20240808
  Receipt Date: 20240930
  Transmission Date: 20241016
  Serious: Yes (Other)
  Sender: PFIZER
  Company Number: CA-PFIZER INC-202400230290

PATIENT
  Age: 17 Year
  Sex: Female

DRUGS (2)
  1. ABRILADA [Suspect]
     Active Substance: ADALIMUMAB-AFZB
     Indication: Crohn^s disease
     Dosage: EVERY 2 WEEKS (WEEK 0 160MG; WEEK 2 80MG)
     Route: 058
     Dates: start: 20240603
  2. CELEBREX [Concomitant]
     Active Substance: CELECOXIB
     Dosage: 100 MG

REACTIONS (3)
  - Tooth abscess [Unknown]
  - Postoperative wound infection [Unknown]
  - Off label use [Unknown]

NARRATIVE: CASE EVENT DATE: 20240101
